FAERS Safety Report 15707202 (Version 1)
Quarter: 2018Q4

REPORT INFORMATION
  Report Type: Spontaneous
  Country: US (occurrence: US)
  Receive Date: 20181210
  Receipt Date: 20181210
  Transmission Date: 20190205
  Serious: No
  Sender: FDA-Public Use
  Company Number: US-ELI_LILLY_AND_COMPANY-US201812002471

PATIENT
  Age: 76 Year
  Sex: Female

DRUGS (2)
  1. CYMBALTA [Suspect]
     Active Substance: DULOXETINE HYDROCHLORIDE
     Indication: PRODUCT USED FOR UNKNOWN INDICATION
     Dosage: UNK, UNKNOWN
     Route: 065
  2. PRALUENT [Suspect]
     Active Substance: ALIROCUMAB
     Indication: PRODUCT USED FOR UNKNOWN INDICATION
     Dosage: UNK, OTHER (EVERY TWO WEEKS)
     Route: 065
     Dates: start: 20181106

REACTIONS (6)
  - Vertigo [Unknown]
  - Rash pruritic [Not Recovered/Not Resolved]
  - Dizziness [Unknown]
  - Memory impairment [Unknown]
  - Vision blurred [Unknown]
  - Fall [Unknown]

NARRATIVE: CASE EVENT DATE: 201811
